FAERS Safety Report 4992215-9 (Version None)
Quarter: 2006Q2

REPORT INFORMATION
  Report Type: 
  Country: None (occurrence: None)
  Receive Date: 20060504
  Receipt Date: 20060403
  Transmission Date: 20061013
  Serious: Yes (Other)
  Sender: FDA-Public Use
  Company Number: US-BRACCO-BDI-008106

PATIENT
  Sex: Female

DRUGS (1)
  1. MULTIHANCE [Suspect]
     Route: 042

REACTIONS (4)
  - EXTRAVASATION [None]
  - INJECTION SITE NECROSIS [None]
  - INJECTION SITE REACTION [None]
  - NECROSIS [None]
